FAERS Safety Report 7401218-6 (Version None)
Quarter: 2011Q2

REPORT INFORMATION
  Report Type: 
  Country: None (occurrence: None)
  Receive Date: 20110407
  Receipt Date: 20110328
  Transmission Date: 20111010
  Serious: Yes (Other)
  Sender: FDA-Public Use
  Company Number: GB-ABBOTT-11P-167-0713259-00

PATIENT
  Age: 30 Year
  Sex: Female
  Weight: 80 kg

DRUGS (22)
  1. CORTICOSTEROID [Concomitant]
     Indication: UVEITIS
     Dosage: RIGHT EYE
     Dates: start: 20110112, end: 20110120
  2. CELLCEPT [Concomitant]
     Indication: UVEITIS
     Dates: start: 20100501, end: 20110112
  3. OMEPRAZOLE [Concomitant]
     Indication: PROPHYLAXIS
  4. PRED FORTE [Concomitant]
     Indication: INFLAMMATION
     Dates: start: 20101122, end: 20110120
  5. MULTI-VITAMIN [Concomitant]
     Indication: VITAMIN SUPPLEMENTATION
     Dates: start: 20070101
  6. CORTICOSTEROID [Concomitant]
     Dosage: RIGHT EYE
     Dates: start: 20110121, end: 20110209
  7. PRED FORTE [Concomitant]
     Dates: start: 20110223
  8. CYCLOPENTOLATE [Concomitant]
     Indication: MYDRIASIS
     Dates: start: 20101122
  9. PRED FORTE [Concomitant]
     Indication: ANTIINFLAMMATORY THERAPY
     Dates: start: 20110121, end: 20110222
  10. PREDNISONE [Suspect]
     Route: 048
     Dates: start: 20110127, end: 20110202
  11. PREDNISONE [Suspect]
     Route: 048
     Dates: start: 20110210, end: 20110216
  12. DOXYCYCLINE [Concomitant]
     Indication: ACNE
     Dates: start: 20101001
  13. ERYTHROMYCINE [Concomitant]
     Indication: ACNE
     Dates: start: 20101001
  14. HUMIRA [Suspect]
     Indication: UVEITIS
     Dosage: 40 MG, ALTERNATE WEEKS
     Route: 058
     Dates: start: 20110112, end: 20110302
  15. PREDNISONE [Suspect]
     Route: 048
     Dates: start: 20110203, end: 20110209
  16. PREDNISONE [Concomitant]
     Indication: ANTIINFLAMMATORY THERAPY
     Route: 048
     Dates: start: 20080401, end: 20110112
  17. ETHINYL ESTRADIOL AND LEVONORGESTREL [Concomitant]
     Indication: CONTRACEPTION
     Dates: start: 19940101
  18. OMEPRAZOLE [Concomitant]
     Indication: GASTRIC DISORDER
     Dates: start: 20101101
  19. GABAPENTIN [Concomitant]
     Indication: TRIGEMINAL NEURALGIA
     Dates: start: 20110314
  20. PREDNISONE [Suspect]
     Indication: UVEITIS
     Route: 048
     Dates: start: 20110113, end: 20110126
  21. CELLCEPT [Concomitant]
     Dates: start: 20110113
  22. CORTICOSTEROID [Concomitant]
     Dosage: RIGHT EYE
     Dates: start: 20110210, end: 20110221

REACTIONS (1)
  - DEMYELINATION [None]
